FAERS Safety Report 15151405 (Version 3)
Quarter: 2018Q4

REPORT INFORMATION
  Report Type: Report from Study
  Country: US (occurrence: US)
  Receive Date: 20180716
  Receipt Date: 20181001
  Transmission Date: 20190204
  Serious: Yes (Hospitalization, Other)
  Sender: FDA-Public Use
  Company Number: US-ACTELION-A-US2018-175239

PATIENT
  Age: 13 Month
  Sex: Female

DRUGS (5)
  1. BOSENTAN TABLET 32 MG PED US [Suspect]
     Active Substance: BOSENTAN
     Indication: PULMONARY HYPERTENSION
     Dosage: 16 MG, BID (HALF A TABLET, PO, BID)
     Route: 048
  2. CHLORTHIAZIDE [Concomitant]
     Active Substance: CHLOROTHIAZIDE
     Dosage: 500 MG, UNK
     Dates: start: 20180723
  3. BOSENTAN TABLET 32 MG PED US [Suspect]
     Active Substance: BOSENTAN
     Dosage: 16 MG, BID (HALF A TABLET, PO, BID)
     Route: 048
     Dates: start: 20180719, end: 2018
  4. REVATIO [Concomitant]
     Active Substance: SILDENAFIL CITRATE
     Dosage: 10 MG/ML, UNK
     Dates: start: 20180723
  5. FUROSEMIDE. [Concomitant]
     Active Substance: FUROSEMIDE
     Dosage: 10 MG/ML, UNK
     Dates: start: 20180723

REACTIONS (4)
  - Respiratory disorder [Unknown]
  - Dyspnoea [Unknown]
  - Heart valve operation [Unknown]
  - Cardiac disorder [Unknown]
